FAERS Safety Report 24328190 (Version 2)
Quarter: 2024Q4

REPORT INFORMATION
  Report Type: Spontaneous
  Country: JP (occurrence: JP)
  Receive Date: 20240917
  Receipt Date: 20241018
  Transmission Date: 20250115
  Serious: Yes (Other)
  Sender: ALEXION PHARMACEUTICALS
  Company Number: 2024A208929

PATIENT
  Age: 82 Year

DRUGS (24)
  1. ONDEXXYA [Suspect]
     Active Substance: ANDEXANET ALFA
     Indication: Subdural haematoma
  2. RIVAROXABAN [Concomitant]
     Active Substance: RIVAROXABAN
     Indication: Atrial fibrillation
     Dosage: DOSE UNKNOWN
     Route: 065
  3. RIVAROXABAN [Concomitant]
     Active Substance: RIVAROXABAN
     Indication: Cerebral artery embolism
     Dosage: NUMBER OF SEPARATE DOSAGES UNKNOWN
  4. RIVAROXABAN [Concomitant]
     Active Substance: RIVAROXABAN
     Dosage: NUMBER OF SEPARATE DOSAGES UNKNOWN
  5. DAPAGLIFLOZIN [Concomitant]
     Active Substance: DAPAGLIFLOZIN
  6. DAPAGLIFLOZIN [Concomitant]
     Active Substance: DAPAGLIFLOZIN
     Dosage: 5 MILLIGRAM
  7. AMIODARONE HYDROCHLORIDE [Concomitant]
     Active Substance: AMIODARONE HYDROCHLORIDE
     Dosage: NUMBER OF SEPARATE DOSAGES UNKNOWN
  8. AMIODARONE HYDROCHLORIDE [Concomitant]
     Active Substance: AMIODARONE HYDROCHLORIDE
     Dosage: NUMBER OF SEPARATE DOSAGES UNKNOWN
  9. CARVEDILOL [Concomitant]
     Active Substance: CARVEDILOL
     Dosage: NUMBER OF SEPARATE DOSAGES UNKNOWN
  10. CARVEDILOL [Concomitant]
     Active Substance: CARVEDILOL
     Dosage: NUMBER OF SEPARATE DOSAGES UNKNOWN
  11. DIGOXIN [Concomitant]
     Active Substance: DIGOXIN
     Dosage: NUMBER OF SEPARATE DOSAGES UNKNOWN
  12. DIGOXIN [Concomitant]
     Active Substance: DIGOXIN
     Dosage: NUMBER OF SEPARATE DOSAGES UNKNOWN
  13. TORSEMIDE [Concomitant]
     Active Substance: TORSEMIDE
     Dosage: NUMBER OF SEPARATE DOSAGES UNKNOWN
  14. TORSEMIDE [Concomitant]
     Active Substance: TORSEMIDE
     Dosage: NUMBER OF SEPARATE DOSAGES UNKNOWN
  15. ENALAPRIL MALEATE [Concomitant]
     Active Substance: ENALAPRIL MALEATE
     Dosage: NUMBER OF SEPARATE DOSAGES UNKNOWN
  16. ENALAPRIL MALEATE [Concomitant]
     Active Substance: ENALAPRIL MALEATE
     Dosage: NUMBER OF SEPARATE DOSAGES UNKNOWN
  17. ROSUVASTATIN [Concomitant]
     Active Substance: ROSUVASTATIN
     Dosage: NUMBER OF SEPARATE DOSAGES UNKNOWN
  18. ROSUVASTATIN [Concomitant]
     Active Substance: ROSUVASTATIN
     Dosage: NUMBER OF SEPARATE DOSAGES UNKNOWN
  19. SITAGLIPTIN PHOSPHATE [Concomitant]
     Active Substance: SITAGLIPTIN PHOSPHATE
     Dosage: NUMBER OF SEPARATE DOSAGES UNKNOWN
  20. SITAGLIPTIN PHOSPHATE [Concomitant]
     Active Substance: SITAGLIPTIN PHOSPHATE
     Dosage: NUMBER OF SEPARATE DOSAGES UNKNOWN
  21. METFORMIN HYDROCHLORIDE [Concomitant]
     Active Substance: METFORMIN HYDROCHLORIDE
     Dosage: NUMBER OF SEPARATE DOSAGES UNKNOWN
  22. METFORMIN HYDROCHLORIDE [Concomitant]
     Active Substance: METFORMIN HYDROCHLORIDE
     Dosage: NUMBER OF SEPARATE DOSAGES UNKNOWN
  23. TRANEXAMIC ACID [Concomitant]
     Active Substance: TRANEXAMIC ACID
     Dosage: 1 GRAM
     Route: 065
  24. TRANEXAMIC ACID [Concomitant]
     Active Substance: TRANEXAMIC ACID
     Dosage: 1 GRAM
     Route: 065

REACTIONS (5)
  - Cerebral artery embolism [Unknown]
  - Subdural haematoma [Unknown]
  - Ventricular tachycardia [Recovering/Resolving]
  - Hypokalaemia [Unknown]
  - Haemothorax [Unknown]
